FAERS Safety Report 23918167 (Version 1)
Quarter: 2024Q2

REPORT INFORMATION
  Report Type: Spontaneous
  Country: IT (occurrence: IT)
  Receive Date: 20240530
  Receipt Date: 20240530
  Transmission Date: 20240717
  Serious: Yes (Other)
  Sender: FDA-Public Use
  Company Number: IT-JNJFOC-20240575679

PATIENT
  Age: 48 Year
  Sex: Male
  Weight: 60 kg

DRUGS (2)
  1. SYMTUZA [Suspect]
     Active Substance: COBICISTAT\DARUNAVIR\EMTRICITABINE\TENOFOVIR ALAFENAMIDE
     Indication: Product used for unknown indication
     Dosage: 800 MG/150 MG/200 MG/10 MG/30 MG?QUANTITY: 30 CPR
     Route: 048
  2. LORMETAZEPAM [Concomitant]
     Active Substance: LORMETAZEPAM
     Indication: Product used for unknown indication
     Dosage: GTT 20 ML 2.5 MG/M; QUANTITY: 30 ML
     Route: 048

REACTIONS (4)
  - Self-destructive behaviour [Unknown]
  - Intentional product misuse [Unknown]
  - Sluggishness [Unknown]
  - Overdose [Unknown]
